FAERS Safety Report 5456967-6 (Version None)
Quarter: 2007Q3

REPORT INFORMATION
  Report Type: 
  Country: None (occurrence: None)
  Receive Date: 20070918
  Receipt Date: 20070330
  Transmission Date: 20080115
  Serious: Yes (Other)
  Sender: FDA-Public Use
  Company Number: US-ASTRAZENECA-2006UW27640

PATIENT
  Sex: Female
  Weight: 68.6 kg

DRUGS (2)
  1. SEROQUEL [Suspect]
     Indication: INSOMNIA RELATED TO ANOTHER MENTAL CONDITION
     Route: 048
  2. EFFEXOR XR [Concomitant]

REACTIONS (2)
  - DIABETIC COMA [None]
  - DIABETIC KETOACIDOSIS [None]
